FAERS Safety Report 5576432-5 (Version None)
Quarter: 2007Q4

REPORT INFORMATION
  Report Type: 
  Country: None (occurrence: None)
  Receive Date: 20071228
  Receipt Date: 20071220
  Transmission Date: 20080405
  Serious: Yes (Hospitalization)
  Sender: FDA-Public Use
  Company Number: FR-ELI_LILLY_AND_COMPANY-FR200712004089

PATIENT
  Sex: Female

DRUGS (6)
  1. ZYPREXA [Suspect]
     Indication: SCHIZOPHRENIA
     Dosage: UNK, UNKNOWN
     Route: 048
  2. STILNOX /FRA/ [Concomitant]
     Indication: INSOMNIA
     Dosage: 10 MG, DAILY (1/D)
     Route: 048
  3. LEPTICUR [Concomitant]
     Indication: PARKINSONISM
     Dosage: 10 MG, 2/D
     Route: 048
  4. TRANXENE [Concomitant]
     Indication: ANXIETY
     Dosage: 5 MG, DAILY (1/D)
     Route: 048
  5. LEVOTHYROX [Concomitant]
     Indication: CONGENITAL HYPOTHYROIDISM
     Dosage: 150 UG, DAILY (1/D)
     Route: 048
  6. INEXIUM [Concomitant]
     Indication: GASTROOESOPHAGEAL REFLUX DISEASE
     Dosage: 20 MG, UNKNOWN
     Route: 048

REACTIONS (5)
  - APHASIA [None]
  - HEMIPLEGIA [None]
  - ISCHAEMIC CEREBRAL INFARCTION [None]
  - MICROCYTIC ANAEMIA [None]
  - SCHIZOPHRENIA [None]
